FAERS Safety Report 18775460 (Version 1)
Quarter: 2021Q1

REPORT INFORMATION
  Report Type: Spontaneous
  Country: PL (occurrence: PL)
  Receive Date: 20210122
  Receipt Date: 20210122
  Transmission Date: 20210419
  Serious: Yes (Other)
  Sender: FDA-Public Use
  Company Number: NVSC2021PL013338

PATIENT
  Age: 52 Year
  Sex: Female

DRUGS (2)
  1. METHOTREXATE. [Suspect]
     Active Substance: METHOTREXATE
     Indication: CERVIX CARCINOMA STAGE I
     Dosage: 15 MG, QW (LOW?DOSE METHOTREXATE 15 MG PER WEEK )
     Route: 065
  2. DAPSON [Suspect]
     Active Substance: DAPSONE
     Indication: ROSAI-DORFMAN SYNDROME
     Dosage: 100 MG, QD
     Route: 065

REACTIONS (2)
  - Drug ineffective [Unknown]
  - Neutropenia [Unknown]
